FAERS Safety Report 6185655-6 (Version None)
Quarter: 2009Q2

REPORT INFORMATION
  Report Type: 
  Country: None (occurrence: None)
  Receive Date: 20090511
  Receipt Date: 20090501
  Transmission Date: 20091009
  Serious: Yes (Hospitalization, Disabling)
  Sender: FDA-Public Use
  Company Number: PHHO2009TW04949

PATIENT
  Sex: Male
  Weight: 58.2 kg

DRUGS (5)
  1. ZOMETA [Suspect]
     Indication: METASTASES TO BONE
  2. RAD 666 RAD+TAB [Suspect]
     Indication: METASTATIC RENAL CELL CARCINOMA
     Dosage: 10 MG/DAY
     Route: 048
     Dates: start: 20090306
  3. FLOGOFENAC [Suspect]
  4. AUGMENTIN '125' [Concomitant]
  5. ESOMEPRAZOLE [Concomitant]

REACTIONS (3)
  - DUODENAL ULCER [None]
  - OSTEONECROSIS [None]
  - TOOTH DISORDER [None]
